FAERS Safety Report 25894587 (Version 1)
Quarter: 2025Q4

REPORT INFORMATION
  Report Type: Spontaneous
  Country: CN (occurrence: CN)
  Receive Date: 20251008
  Receipt Date: 20251008
  Transmission Date: 20260118
  Serious: Yes (Life-Threatening, Hospitalization, Other)
  Sender: BAXTER
  Company Number: None

PATIENT
  Age: 51 Year
  Sex: Female
  Weight: 46 kg

DRUGS (4)
  1. CYCLOPHOSPHAMIDE [Suspect]
     Active Substance: CYCLOPHOSPHAMIDE
     Indication: Lymphoma
     Dosage: 1 G, QD (DOSAGE FORM: LYOPHILIZED POWDER)
     Route: 041
     Dates: start: 20250916, end: 20250916
  2. SODIUM CHLORIDE [Suspect]
     Active Substance: SODIUM CHLORIDE
     Dosage: 100 ML, QD (INJECTION) (WITH CYCLOPHOSPHAMIDE)
     Route: 041
     Dates: start: 20250916, end: 20250916
  3. DEXTROSE [Suspect]
     Active Substance: DEXTROSE MONOHYDRATE
     Dosage: 100 ML, QD (GLUCOSE INJECTION WITH PIRARUBICIN HYDROCHLORIDE)
     Route: 041
     Dates: start: 20250916, end: 20250916
  4. PIRARUBICIN HYDROCHLORIDE [Suspect]
     Active Substance: PIRARUBICIN HYDROCHLORIDE
     Indication: Lymphoma
     Dosage: 70 MG, QD (DOSAGE FORM: LYOPHILIZED POWDER)
     Route: 041
     Dates: start: 20250916, end: 20250916

REACTIONS (2)
  - Myelosuppression [Recovering/Resolving]
  - Pyrexia [Recovering/Resolving]

NARRATIVE: CASE EVENT DATE: 20250925
